FAERS Safety Report 4490035-5 (Version None)
Quarter: 2004Q4

REPORT INFORMATION
  Report Type: 
  Country: None (occurrence: None)
  Receive Date: 20041027
  Receipt Date: 20041019
  Transmission Date: 20050328
  Serious: Yes (Hospitalization)
  Sender: FDA-Public Use
  Company Number: TAP2002Q00046

PATIENT
  Age: 32 Year
  Sex: Female

DRUGS (5)
  1. LUPRON [Suspect]
     Indication: ENDOMETRIOSIS
     Dosage: SEE IMAGE
     Route: 058
     Dates: start: 19890101, end: 19890101
  2. LUPRON [Suspect]
     Indication: INFERTILITY
     Dosage: SEE IMAGE
     Route: 058
     Dates: start: 19890101, end: 19890101
  3. LUPRON [Suspect]
     Indication: ENDOMETRIOSIS
     Dosage: SEE IMAGE
     Route: 058
     Dates: start: 19900101, end: 19910101
  4. LUPRON [Suspect]
     Indication: INFERTILITY
     Dosage: SEE IMAGE
     Route: 058
     Dates: start: 19900101, end: 19910101
  5. TYLENOL WITH CODEINE (PANADEINE CO) [Concomitant]

REACTIONS (19)
  - AMNESIA [None]
  - ARRHYTHMIA [None]
  - ARTHRALGIA [None]
  - ARTHROPATHY [None]
  - BILIARY ADENOMA [None]
  - BREAST CYST [None]
  - DIZZINESS [None]
  - FATIGUE [None]
  - GAMMOPATHY [None]
  - GASTRITIS [None]
  - GASTROOESOPHAGEAL REFLUX DISEASE [None]
  - HYPERLIPIDAEMIA [None]
  - IMPAIRED GASTRIC EMPTYING [None]
  - LYMPHADENOPATHY [None]
  - MUSCLE SPASMS [None]
  - MYALGIA [None]
  - NEURALGIA [None]
  - OEDEMA [None]
  - OSTEOPOROSIS [None]
